FAERS Safety Report 5870227-0 (Version None)
Quarter: 2008Q3

REPORT INFORMATION
  Report Type: 
  Country: None (occurrence: None)
  Receive Date: 20080904
  Receipt Date: 20080903
  Transmission Date: 20090109
  Serious: Yes (Hospitalization)
  Sender: FDA-Public Use
  Company Number: FI-BRISTOL-MYERS SQUIBB COMPANY-14322051

PATIENT
  Age: 51 Year
  Sex: Female

DRUGS (3)
  1. ABILIFY [Suspect]
     Indication: BIPOLAR DISORDER
     Dates: start: 20080423
  2. DEPRAKINE [Concomitant]
  3. ZYPREXA [Concomitant]

REACTIONS (2)
  - MANIA [None]
  - SLEEP DISORDER [None]
